FAERS Safety Report 10084989 (Version 1)
Quarter: 2014Q2

REPORT INFORMATION
  Report Type: Spontaneous
  Country: ES (occurrence: ES)
  Receive Date: 20140417
  Receipt Date: 20140417
  Transmission Date: 20141212
  Serious: Yes (Other)
  Sender: FDA-Public Use
  Company Number: ES-VERTEX PHARMACEUTICALS INC-2014-001967

PATIENT
  Age: 73 Year
  Sex: Female

DRUGS (1)
  1. INCIVO [Suspect]
     Indication: HEPATITIS C
     Dosage: 1125 MG, BID
     Route: 048
     Dates: start: 20140220, end: 20140306

REACTIONS (1)
  - Rash pruritic [Recovered/Resolved]
